FAERS Safety Report 10396775 (Version 1)
Quarter: 2014Q3

REPORT INFORMATION
  Report Type: Spontaneous
  Country: JP (occurrence: JP)
  Receive Date: 20140820
  Receipt Date: 20140820
  Transmission Date: 20150326
  Serious: Yes (Other)
  Sender: FDA-Public Use
  Company Number: PHHY2009JP072253

PATIENT
  Age: 10 Year
  Sex: Female

DRUGS (6)
  1. GLIVEC [Suspect]
     Active Substance: IMATINIB MESYLATE
     Dosage: 700 MG/M2, POST IMPLATATION COURSE 2
  2. GLIVEC [Suspect]
     Active Substance: IMATINIB MESYLATE
     Indication: ACUTE LYMPHOCYTIC LEUKAEMIA
     Dosage: 400 MG (350 MG/M2), GIVEN BEFORE TREATMENT
     Dates: start: 2008
  3. TACROLIMUS. [Suspect]
     Active Substance: TACROLIMUS
     Dosage: 700 MG/M2, UNK
  4. TACROLIMUS. [Suspect]
     Active Substance: TACROLIMUS
     Dosage: 530 MG/M2, UNK
  5. GLIVEC [Suspect]
     Active Substance: IMATINIB MESYLATE
     Dosage: 400 MG (350 MG/M2), POST TRANSPLANTATION (COURSE 1)
     Dates: start: 2008
  6. TACROLIMUS. [Suspect]
     Active Substance: TACROLIMUS
     Dosage: 350 MG/M2, UNK
     Dates: start: 200803

REACTIONS (11)
  - White blood cell count decreased [Unknown]
  - Anaemia [Unknown]
  - Rash [Unknown]
  - Platelet count decreased [Unknown]
  - Neutropenia [Unknown]
  - Nausea [Unknown]
  - Therapeutic response decreased [Unknown]
  - Gastrointestinal disorder [Unknown]
  - Face oedema [Unknown]
  - Abdominal pain [Unknown]
  - Myalgia [Unknown]
